FAERS Safety Report 7373965-6 (Version None)
Quarter: 2011Q1

REPORT INFORMATION
  Report Type: 
  Country: None (occurrence: None)
  Receive Date: 20110316
  Receipt Date: 20110214
  Transmission Date: 20110831
  Serious: Yes (Other)
  Sender: FDA-Public Use
  Company Number: 2011SP010343

PATIENT
  Age: 35 Year
  Sex: Female

DRUGS (6)
  1. EMEND [Suspect]
     Indication: PRODUCT USED FOR UNKNOWN INDICATION
     Dates: start: 20101231
  2. HYDROCORTISONE [Suspect]
     Indication: PRODUCT USED FOR UNKNOWN INDICATION
  3. TROPISETRON HYDROCHLORIDE (TROPISETON HYDROCHLORIDE) [Suspect]
     Indication: PRODUCT USED FOR UNKNOWN INDICATION
     Dates: start: 20101231
  4. TAXOTERE [Suspect]
     Indication: PRODUCT USED FOR UNKNOWN INDICATION
     Dosage: 130 MG;ONCE;IV
     Route: 042
     Dates: start: 20101231
  5. CLARITIN [Suspect]
     Indication: PRODUCT USED FOR UNKNOWN INDICATION
     Dates: start: 20101231
  6. DEXAMETHASONE [Suspect]
     Indication: PRODUCT USED FOR UNKNOWN INDICATION
     Dates: start: 20101231

REACTIONS (3)
  - INFUSION RELATED REACTION [None]
  - OXYGEN SATURATION DECREASED [None]
  - HYPERSENSITIVITY [None]
